FAERS Safety Report 5257572-7 (Version None)
Quarter: 2007Q1

REPORT INFORMATION
  Report Type: 
  Country: None (occurrence: None)
  Receive Date: 20070307
  Receipt Date: 20070213
  Transmission Date: 20070707
  Serious: No
  Sender: FDA-Public Use
  Company Number: US-GLAXOSMITHKLINE-A0620592A

PATIENT
  Age: 47 Year
  Sex: Male
  Weight: 159.1 kg

DRUGS (7)
  1. REQUIP [Suspect]
     Indication: RESTLESS LEGS SYNDROME
     Dosage: 1MG SEE DOSAGE TEXT
     Route: 048
     Dates: start: 20060727
  2. WELLBUTRIN XL [Concomitant]
     Indication: DEPRESSION
     Dosage: 300MG TWICE PER DAY
     Route: 048
  3. EFFEXOR XR [Concomitant]
     Indication: DEPRESSION
     Dosage: 300MG TWICE PER DAY
     Route: 048
  4. ACIPHEX [Concomitant]
     Dosage: 200MG PER DAY
     Route: 048
  5. CELEBREX [Concomitant]
     Dosage: 200MG TWICE PER DAY
     Route: 048
  6. ALPRAZOLAM [Concomitant]
     Indication: ANXIETY
     Dosage: 1MG PER DAY
     Route: 048
  7. ZYRTEC [Concomitant]
     Indication: MULTIPLE ALLERGIES
     Dosage: 10MG PER DAY
     Route: 048

REACTIONS (2)
  - DYSKINESIA [None]
  - TREMOR [None]
